FAERS Safety Report 9443421 (Version 1)
Quarter: 2013Q3

REPORT INFORMATION
  Report Type: Spontaneous
  Country: US (occurrence: None)
  Receive Date: 20130802
  Receipt Date: 20130802
  Transmission Date: 20140515
  Serious: Yes (Hospitalization)
  Sender: FDA-Public Use
  Company Number: CIO13043193

PATIENT
  Sex: Male

DRUGS (1)
  1. ZZZQUIL NIGHTIME SLEEP-AID [Suspect]
     Dosage: 24 LIQUICAP, 1 ONLY, ORAL
     Route: 048
     Dates: start: 20130726, end: 20130726

REACTIONS (3)
  - Suicide attempt [None]
  - Dysarthria [None]
  - Somnolence [None]
